FAERS Safety Report 25524639 (Version 1)
Quarter: 2025Q3

REPORT INFORMATION
  Report Type: Spontaneous
  Country: GB (occurrence: GB)
  Receive Date: 20250707
  Receipt Date: 20250707
  Transmission Date: 20251020
  Serious: Yes (Life-Threatening, Other)
  Sender: AUROBINDO
  Company Number: GB-MHRA-MED-202506271755170240-NHBDF

PATIENT
  Age: 70 Year
  Sex: Male
  Weight: 96 kg

DRUGS (2)
  1. FINASTERIDE [Suspect]
     Active Substance: FINASTERIDE
     Indication: Prostatectomy
     Route: 065
     Dates: start: 2019, end: 20250627
  2. ATORVASTATIN [Concomitant]
     Active Substance: ATORVASTATIN
     Indication: Product used for unknown indication
     Route: 065
     Dates: start: 2023

REACTIONS (4)
  - Completed suicide [Recovered/Resolved]
  - Lethargy [Not Recovered/Not Resolved]
  - Abnormal dreams [Not Recovered/Not Resolved]
  - Somnolence [Not Recovered/Not Resolved]

NARRATIVE: CASE EVENT DATE: 20200101
